FAERS Safety Report 4264536-9 (Version None)
Quarter: 2004Q1

REPORT INFORMATION
  Report Type: 
  Country: None (occurrence: None)
  Receive Date: 20040102
  Receipt Date: 20031229
  Transmission Date: 20041129
  Serious: Yes (Life-Threatening, Hospitalization)
  Sender: FDA-Public Use
  Company Number: 200327595BWH

PATIENT
  Age: 53 Year
  Sex: Male
  Weight: 67.586 kg

DRUGS (14)
  1. LEVITRA [Suspect]
     Indication: ERECTILE DYSFUNCTION
     Dosage: 5 MG, QD, ORAL
     Route: 048
     Dates: start: 20031009, end: 20031012
  2. SPORANOX [Concomitant]
  3. TENORMIN [Concomitant]
  4. CARDURA [Concomitant]
  5. MAXZIDE [Concomitant]
  6. VIREAD [Concomitant]
  7. EPIVIR [Concomitant]
  8. VIRAMUNE [Concomitant]
  9. PROTONIX [Concomitant]
  10. SYNTHROID [Concomitant]
  11. ACYCLOVIR [Concomitant]
  12. SOMA [Concomitant]
  13. DEPO-TESTOSTERONE [Concomitant]
  14. NANDROLONE DECANOATE [Concomitant]

REACTIONS (6)
  - ATRIAL FIBRILLATION [None]
  - CHEST DISCOMFORT [None]
  - DYSPNOEA [None]
  - HEART RATE INCREASED [None]
  - HEART RATE IRREGULAR [None]
  - PULSE PRESSURE DECREASED [None]
